FAERS Safety Report 7951261-3 (Version None)
Quarter: 2011Q4

REPORT INFORMATION
  Report Type: 
  Country: None (occurrence: None)
  Receive Date: 20111201
  Receipt Date: 20111124
  Transmission Date: 20120403
  Serious: Yes (Other)
  Sender: FDA-Public Use
  Company Number: AU-UCBSA-029946

PATIENT
  Age: 28 Year
  Sex: Female
  Weight: 60 kg

DRUGS (6)
  1. PHENYTOIN [Suspect]
     Indication: EPILEPSY
     Dates: end: 20110220
  2. KEPPRA [Suspect]
     Route: 048
     Dates: start: 20110301
  3. CLOBAZAM [Suspect]
     Indication: EPILEPSY
     Route: 048
  4. PHENYTOIN [Suspect]
     Route: 048
     Dates: start: 20110101
  5. KEPPRA [Suspect]
     Dates: start: 20110315, end: 20110301
  6. KEPPRA [Suspect]
     Indication: EPILEPSY
     Dates: start: 20110220, end: 20110307

REACTIONS (3)
  - DRUG INEFFECTIVE [None]
  - CAESAREAN SECTION [None]
  - PREGNANCY [None]
